FAERS Safety Report 4615773-2 (Version None)
Quarter: 2005Q2

REPORT INFORMATION
  Report Type: 
  Country: None (occurrence: None)
  Receive Date: 20050310
  Receipt Date: 20041110
  Transmission Date: 20051028
  Serious: Yes (Hospitalization)
  Sender: FDA-Public Use
  Company Number: F03200400065

PATIENT
  Age: 70 Year
  Sex: Female

DRUGS (11)
  1. OXALIPLATIN - SOLUTION [Suspect]
     Indication: GASTRIC CANCER
     Dosage: 87 MG OTHER - INTRAVENOUS NOS
     Route: 042
     Dates: start: 20040524, end: 20040524
  2. FLUOROURACIL [Suspect]
     Indication: GASTRIC CANCER
     Dosage: 300MG/M2 GIVEN MONDAY THROUGH FRIDAY X 5 WEEKS - INTRAVENOUS NOS
     Route: 042
     Dates: start: 20040524, end: 20040528
  3. LOSARTAN POTASSIUM [Concomitant]
  4. LISINOPRIL [Concomitant]
  5. GLYBURIDE [Concomitant]
  6. RABEPRAZOLE SODIUM [Concomitant]
  7. ESTROGENS CONJUGATED [Concomitant]
  8. CITALOPRAM HYDROBROMIDE [Concomitant]
  9. LORAZEPAM [Concomitant]
  10. HYDROCODONE BITARTRATE [Concomitant]
  11. PROMETHAZINE [Concomitant]

REACTIONS (2)
  - NAUSEA [None]
  - VOMITING [None]
